FAERS Safety Report 16871534 (Version 1)
Quarter: 2019Q4

REPORT INFORMATION
  Report Type: Spontaneous
  Country: IT (occurrence: IT)
  Receive Date: 20191001
  Receipt Date: 20191001
  Transmission Date: 20200122
  Serious: Yes (Life-Threatening)
  Sender: FDA-Public Use
  Company Number: IT-TEVA-2019-IT-1114635

PATIENT
  Age: 68 Year
  Sex: Female
  Weight: 46 kg

DRUGS (1)
  1. CARBOPLATINO TEVA 10 MG/ML [Suspect]
     Active Substance: CARBOPLATIN
     Indication: LUNG NEOPLASM
     Dosage: 135 MG
     Route: 042
     Dates: start: 20190905, end: 20190905

REACTIONS (2)
  - Bronchospasm [Recovered/Resolved]
  - Hypotension [Recovered/Resolved]

NARRATIVE: CASE EVENT DATE: 20190905
